FAERS Safety Report 8199063-X (Version None)
Quarter: 2012Q1

REPORT INFORMATION
  Report Type: 
  Country: None (occurrence: None)
  Receive Date: 20120309
  Receipt Date: 20120301
  Transmission Date: 20120608
  Serious: Yes (Other)
  Sender: FDA-Public Use
  Company Number: FR-GLAXOSMITHKLINE-B0785400A

PATIENT
  Sex: Female

DRUGS (5)
  1. IMOVANE [Concomitant]
  2. KEPPRA [Concomitant]
  3. XELODA [Suspect]
     Indication: BREAST CANCER METASTATIC
     Route: 048
     Dates: start: 20110301
  4. LAPATINIB [Suspect]
     Indication: BREAST CANCER METASTATIC
     Route: 048
     Dates: start: 20110301
  5. ZOMIG [Concomitant]

REACTIONS (1)
  - HYPERTRIGLYCERIDAEMIA [None]
